FAERS Safety Report 5840244-5 (Version None)
Quarter: 2008Q3

REPORT INFORMATION
  Report Type: 
  Country: None (occurrence: None)
  Receive Date: 20080730
  Receipt Date: 20080505
  Transmission Date: 20090109
  Serious: No
  Sender: FDA-Public Use
  Company Number: 2008-US-000301

PATIENT
  Age: 9 Year
  Sex: Female
  Weight: 15.4 kg

DRUGS (2)
  1. INCRELEX [Suspect]
     Indication: GROWTH RETARDATION
     Dosage: 20 MG, SUBCUTANEOUS
     Route: 058
     Dates: start: 20070801, end: 20080407
  2. SYNTHROID (LEVOTHYRODINE SODIUM) [Concomitant]

REACTIONS (3)
  - ASTHENIA [None]
  - BLOOD GLUCOSE DECREASED [None]
  - NERVOUSNESS [None]
